FAERS Safety Report 23708337 (Version 2)
Quarter: 2024Q2

REPORT INFORMATION
  Report Type: Spontaneous
  Country: US (occurrence: US)
  Receive Date: 20240404
  Receipt Date: 20240408
  Transmission Date: 20240715
  Serious: No
  Sender: FDA-Public Use
  Company Number: US-MYLANLABS-2024M1026043

PATIENT
  Sex: Female
  Weight: 105.23 kg

DRUGS (4)
  1. LYRICA [Suspect]
     Active Substance: PREGABALIN
     Indication: Neuralgia
     Dosage: 150 MILLIGRAM, BID (MORNING AND NIGHT)
     Route: 065
  2. LYRICA [Suspect]
     Active Substance: PREGABALIN
     Dosage: 225 MILLIGRAM, QD (75 AT AM AND 150 AT PM)
     Route: 065
  3. LYRICA [Suspect]
     Active Substance: PREGABALIN
     Dosage: 150 MILLIGRAM, QD (AT NIGHT)
     Route: 065
  4. LYRICA [Suspect]
     Active Substance: PREGABALIN
     Dosage: 75 MILLIGRAM, QD (AT NIGHT)
     Route: 065

REACTIONS (1)
  - Blood glucose increased [Unknown]
